FAERS Safety Report 9444815 (Version 1)
Quarter: 2013Q3

REPORT INFORMATION
  Report Type: Report from Study
  Country: DE (occurrence: DE)
  Receive Date: 20130807
  Receipt Date: 20130807
  Transmission Date: 20140515
  Serious: Yes (Hospitalization)
  Sender: FDA-Public Use
  Company Number: DE-UCBSA-093939

PATIENT
  Sex: Female
  Weight: 50 kg

DRUGS (8)
  1. NEUPRO [Suspect]
     Indication: RESTLESS LEGS SYNDROME
     Dosage: UNKNOWN DOSE
     Route: 062
  2. ENA HEXAL [Concomitant]
     Indication: HYPERTENSION
     Route: 048
  3. MOTILIUM [Concomitant]
     Route: 048
  4. TARGIN [Concomitant]
     Indication: RESTLESS LEGS SYNDROME
     Dosage: 10/5 MG RETARD
     Route: 048
  5. ZOPICLODURE [Concomitant]
     Indication: SLEEP DISORDER
     Route: 048
  6. TEBONIN [Concomitant]
     Indication: DEMENTIA
     Route: 048
  7. CALCIUM DURA [Concomitant]
     Indication: OSTEOPOROSIS
     Route: 048
  8. VIGANTOLETTEN [Concomitant]
     Indication: OSTEOPOROSIS
     Route: 048

REACTIONS (10)
  - Nausea [Unknown]
  - Vomiting [Unknown]
  - Dizziness [Unknown]
  - Diarrhoea [Unknown]
  - Constipation [Unknown]
  - Sleep disorder [Unknown]
  - Fatigue [Unknown]
  - Depression [Unknown]
  - Disorientation [Unknown]
  - Headache [Unknown]
